FAERS Safety Report 9454918 (Version 1)
Quarter: 2013Q1

REPORT INFORMATION
  Report Type: Spontaneous
  Country: US (occurrence: None)
  Receive Date: 20120308
  Receipt Date: 20120308
  Transmission Date: 20140127
  Serious: No
  Sender: FDA-Public Use
  Company Number: 2012-00150

PATIENT
  Age: 60 Year
  Sex: Male
  Weight: 80.74 kg

DRUGS (1)
  1. SIMVASTATIN TABLETS USP 20 MG [Suspect]
     Indication: BLOOD CHOLESTEROL INCREASED
     Route: 048
     Dates: start: 2008

REACTIONS (1)
  - Pain in extremity [None]
